FAERS Safety Report 5376219-2 (Version None)
Quarter: 2007Q3

REPORT INFORMATION
  Report Type: 
  Country: None (occurrence: None)
  Receive Date: 20070702
  Receipt Date: 20070621
  Transmission Date: 20080115
  Serious: Yes (Hospitalization)
  Sender: FDA-Public Use
  Company Number: IL-MERCK-0706ISR00009

PATIENT
  Sex: Female
  Weight: 51 kg

DRUGS (10)
  1. ZETIA [Suspect]
     Route: 065
  2. CILAZAPRIL [Concomitant]
     Route: 065
  3. DILTIAZEM HYDROCHLORIDE [Suspect]
     Route: 065
  4. FAMOTIDINE [Concomitant]
     Route: 065
  5. GLYBURIDE [Concomitant]
     Route: 065
  6. METFORMIN [Suspect]
     Route: 065
  7. DEXAMETHASONE [Suspect]
     Route: 065
  8. HYDROCHLOROTHIAZIDE [Suspect]
     Route: 065
  9. NIFEDIPINE [Suspect]
     Route: 065
  10. TEMOZOLOMIDE [Concomitant]
     Route: 065
     Dates: start: 20070603, end: 20070613

REACTIONS (6)
  - ASTHENIA [None]
  - CARDIAC FAILURE [None]
  - COUGH [None]
  - OEDEMA PERIPHERAL [None]
  - PYREXIA [None]
  - UPPER RESPIRATORY TRACT INFECTION [None]
